FAERS Safety Report 20011658 (Version 2)
Quarter: 2021Q4

REPORT INFORMATION
  Report Type: Spontaneous
  Country: US (occurrence: US)
  Receive Date: 20211029
  Receipt Date: 20211104
  Transmission Date: 20220303
  Serious: Yes (Other)
  Sender: FDA-Public Use
  Company Number: US-PFIZER INC-202101282739

PATIENT
  Age: 36 Year
  Sex: Female

DRUGS (1)
  1. LORLATINIB [Suspect]
     Active Substance: LORLATINIB
     Indication: Inflammatory myofibroblastic tumour
     Dosage: 50 MG
     Dates: start: 202008

REACTIONS (10)
  - Neuropathy peripheral [Unknown]
  - Mental impairment [Unknown]
  - Depression suicidal [Unknown]
  - Arthralgia [Unknown]
  - Myalgia [Unknown]
  - Weight increased [Unknown]
  - Disturbance in attention [Unknown]
  - Blood cholesterol increased [Unknown]
  - Aphasia [Unknown]
  - Off label use [Unknown]
